FAERS Safety Report 8909732 (Version 1)
Quarter: 2012Q4

REPORT INFORMATION
  Report Type: 
  Country: US (occurrence: US)
  Receive Date: 20121115
  Receipt Date: 20121115
  Transmission Date: 20130627
  Serious: Yes (Other)
  Sender: FDA-Public Use
  Company Number: US-PFIZER INC-2012285780

PATIENT
  Age: 48 Year
  Sex: Female
  Weight: 90.7 kg

DRUGS (1)
  1. LYRICA [Suspect]
     Indication: NERVE DAMAGE
     Dosage: 150 mg, 2x/day
     Dates: start: 201201

REACTIONS (3)
  - Blindness [Unknown]
  - Nervous system disorder [Unknown]
  - Headache [Unknown]
